FAERS Safety Report 10298737 (Version 4)
Quarter: 2019Q4

REPORT INFORMATION
  Report Type: Report from Study
  Country: US (occurrence: US)
  Receive Date: 20140711
  Receipt Date: 20191021
  Transmission Date: 20200122
  Serious: Yes (Hospitalization, Other)
  Sender: FDA-Public Use
  Company Number: US-SA-2014SA003709

PATIENT
  Age: 52 Year
  Sex: Female

DRUGS (7)
  1. GLIPIZIDE. [Concomitant]
     Active Substance: GLIPIZIDE
     Indication: DIABETES MELLITUS
     Dosage: 10 MG,UNK
     Route: 048
     Dates: start: 20120101
  2. TERIFLUNOMIDE. [Suspect]
     Active Substance: TERIFLUNOMIDE
     Indication: MULTIPLE SCLEROSIS
     Dosage: 14 MG,QD
     Route: 048
     Dates: start: 20130726
  3. TERIFLUNOMIDE. [Suspect]
     Active Substance: TERIFLUNOMIDE
     Dosage: 14 MG,QD
     Route: 048
     Dates: start: 20131202
  4. METFORMIN HYDROCHLORIDE;SITAGLIPTIN PHOSPHATE MONOHYDRATE [Concomitant]
     Active Substance: METFORMIN HYDROCHLORIDE\SITAGLIPTIN PHOSPHATE
     Indication: DIABETES MELLITUS
     Dosage: UNK UNK,UNK
     Route: 048
     Dates: start: 20110101
  5. NITROFURANTOIN. [Concomitant]
     Active Substance: NITROFURANTOIN
     Indication: MULTIPLE SCLEROSIS
     Dosage: 50 MG,UNK
     Route: 048
     Dates: start: 20120101
  6. DALFAMPRIDINE. [Concomitant]
     Active Substance: DALFAMPRIDINE
  7. GABAPENTIN. [Concomitant]
     Active Substance: GABAPENTIN
     Indication: MULTIPLE SCLEROSIS
     Dosage: 400 MG,UNK
     Route: 048
     Dates: start: 20040101

REACTIONS (6)
  - Inappropriate schedule of product administration [Unknown]
  - Product dose omission [Unknown]
  - Alopecia [Recovering/Resolving]
  - Cellulitis [Unknown]
  - Hospitalisation [Unknown]
  - Diarrhoea [Not Recovered/Not Resolved]

NARRATIVE: CASE EVENT DATE: 20140201
